FAERS Safety Report 6078099-9 (Version None)
Quarter: 2009Q1

REPORT INFORMATION
  Report Type: 
  Country: None (occurrence: None)
  Receive Date: 20090213
  Receipt Date: 20090208
  Transmission Date: 20090719
  Serious: Yes (Other)
  Sender: FDA-Public Use
  Company Number: FR-ABBOTT-09P-056-0500629-00

PATIENT
  Sex: Female
  Weight: 68 kg

DRUGS (3)
  1. ENANTONE 11.25 MG [Suspect]
     Indication: POLYCYSTIC OVARIES
     Route: 030
     Dates: start: 20080917, end: 20080917
  2. LUTENYL [Concomitant]
     Indication: POLYCYSTIC OVARIES
  3. DECAPEPTYL (TRIPCORELIN) [Concomitant]
     Indication: DRUG USE FOR UNKNOWN INDICATION
     Dates: start: 20081114

REACTIONS (5)
  - ADNEXA UTERI PAIN [None]
  - OESTRADIOL INCREASED [None]
  - OVARIAN CYST [None]
  - OVARIAN HYPERSTIMULATION SYNDROME [None]
  - PARADOXICAL DRUG REACTION [None]
